FAERS Safety Report 6146283-1 (Version None)
Quarter: 2009Q2

REPORT INFORMATION
  Report Type: 
  Country: None (occurrence: None)
  Receive Date: 20090403
  Receipt Date: 20090403
  Transmission Date: 20091009
  Serious: Yes (Hospitalization)
  Sender: FDA-Public Use
  Company Number: None

PATIENT
  Sex: Male
  Weight: 94.8 kg

DRUGS (2)
  1. CARBOPLATIN [Suspect]
     Dosage: 933 MG
     Dates: end: 20090224
  2. PACLITAXEL [Suspect]
     Dates: end: 20090224

REACTIONS (9)
  - ASTHENIA [None]
  - CHEST PAIN [None]
  - DYSPNOEA [None]
  - PROCTALGIA [None]
  - PRODUCTIVE COUGH [None]
  - RECTAL ABSCESS [None]
  - RENAL FAILURE ACUTE [None]
  - URINARY TRACT INFECTION [None]
  - URINE OUTPUT DECREASED [None]
